FAERS Safety Report 7833868-7 (Version None)
Quarter: 2011Q4

REPORT INFORMATION
  Report Type: 
  Country: None (occurrence: None)
  Receive Date: 20111024
  Receipt Date: 20111016
  Transmission Date: 20120403
  Serious: Yes (Hospitalization, Other)
  Sender: FDA-Public Use
  Company Number: DE-ROCHE-794567

PATIENT
  Sex: Male
  Weight: 80 kg

DRUGS (3)
  1. COPEGUS [Suspect]
     Indication: HEPATITIS C
     Route: 048
     Dates: start: 20110204, end: 20110802
  2. SEROQUEL [Concomitant]
     Indication: PSYCHOTIC DISORDER
     Route: 048
  3. PEG-INTERFERON ALFA 2A [Suspect]
     Indication: HEPATITIS C
     Route: 058
     Dates: start: 20110204, end: 20110802

REACTIONS (1)
  - PSORIASIS [None]
